FAERS Safety Report 9739027 (Version 2)
Quarter: 2013Q4

REPORT INFORMATION
  Report Type: Report from Study
  Country: VE (occurrence: VE)
  Receive Date: 20131209
  Receipt Date: 20131213
  Transmission Date: 20140711
  Serious: Yes (Hospitalization, Other)
  Sender: FDA-Public Use
  Company Number: PHHY2013VE142321

PATIENT
  Age: 64 Year
  Sex: Female

DRUGS (4)
  1. ACLASTA [Suspect]
     Indication: OSTEOPENIA
     Dosage: 5 MG, ANNUALLY
     Route: 042
  2. ACLASTA [Suspect]
     Indication: OFF LABEL USE
     Dosage: 5 MG, ANNUALLY
     Route: 042
     Dates: start: 2012
  3. DIOVAN [Suspect]
     Indication: HYPERTENSION
     Dosage: 40 MG, DAILY
     Route: 048
  4. DIOVAN [Suspect]
     Dosage: 80 MG, DAILY
     Route: 048

REACTIONS (5)
  - Upper limb fracture [Recovering/Resolving]
  - Fall [Unknown]
  - Movement disorder [Not Recovered/Not Resolved]
  - Spinal pain [Unknown]
  - Pain in extremity [Not Recovered/Not Resolved]
